FAERS Safety Report 5442000-9 (Version None)
Quarter: 2007Q3

REPORT INFORMATION
  Report Type: 
  Country: None (occurrence: None)
  Receive Date: 20070904
  Receipt Date: 20070827
  Transmission Date: 20080115
  Serious: Yes (Life-Threatening)
  Sender: FDA-Public Use
  Company Number: B0485699A

PATIENT
  Age: 63 Year
  Sex: Male

DRUGS (1)
  1. AVODART [Suspect]
     Indication: PROSTATITIS
     Dosage: .5MG PER DAY
     Route: 065
     Dates: start: 20040901, end: 20070222

REACTIONS (3)
  - AMNESIA [None]
  - CEREBRAL INFARCTION [None]
  - DISORIENTATION [None]
